FAERS Safety Report 6649635-6 (Version None)
Quarter: 2010Q1

REPORT INFORMATION
  Report Type: 
  Country: None (occurrence: None)
  Receive Date: 20100324
  Receipt Date: 20091023
  Transmission Date: 20100710
  Serious: No
  Sender: FDA-Public Use
  Company Number: US-AMGEN-KDL370914

PATIENT
  Sex: Female

DRUGS (4)
  1. NEULASTA [Suspect]
     Indication: CHEMOTHERAPY
     Dates: start: 20091022
  2. VP-16 [Concomitant]
     Dates: start: 20091019, end: 20091021
  3. CARBOPLATIN [Concomitant]
     Dates: start: 20091019, end: 20091021
  4. UNSPECIFIED STEROIDS [Concomitant]
     Dates: start: 20091019, end: 20091021

REACTIONS (3)
  - BLOOD SODIUM DECREASED [None]
  - DIZZINESS [None]
  - NAUSEA [None]
